FAERS Safety Report 20889692 (Version 6)
Quarter: 2022Q4

REPORT INFORMATION
  Report Type: Spontaneous
  Country: CZ (occurrence: CZ)
  Receive Date: 20220530
  Receipt Date: 20221109
  Transmission Date: 20230113
  Serious: Yes (Other)
  Sender: FDA-Public Use
  Company Number: CZ-CELLTRION INC.-2022CZ007523

PATIENT

DRUGS (7)
  1. RITUXIMAB [Suspect]
     Active Substance: RITUXIMAB
     Indication: Glomerulonephritis
     Dosage: UNK(AT 6-MONTH INTERVALS)
  2. METHYLPREDNISOLONE [Suspect]
     Active Substance: METHYLPREDNISOLONE
     Indication: Glomerulonephritis
     Dosage: THREE PULSES
  3. PREDNISONE [Suspect]
     Active Substance: PREDNISONE
     Indication: Glomerulonephritis
     Dosage: 1 MG/KG, QD (TAPERED AND STOPPED)
     Route: 048
  4. CEFTAZIDIME [Concomitant]
     Active Substance: CEFTAZIDIME
     Indication: Enterococcal infection
     Dosage: UNK
  5. CEFTAZIDIME [Concomitant]
     Active Substance: CEFTAZIDIME
     Indication: Staphylococcal infection
  6. VANCOMYCIN [Concomitant]
     Active Substance: VANCOMYCIN
     Indication: Enterococcal infection
     Dosage: UNK
  7. VANCOMYCIN [Concomitant]
     Active Substance: VANCOMYCIN
     Indication: Staphylococcal infection

REACTIONS (3)
  - Device related sepsis [Unknown]
  - Ophthalmic herpes simplex [Unknown]
  - Off label use [Unknown]
